FAERS Safety Report 5007075-X (Version None)
Quarter: 2006Q2

REPORT INFORMATION
  Report Type: 
  Country: None (occurrence: None)
  Receive Date: 20060519
  Receipt Date: 20060512
  Transmission Date: 20061013
  Serious: Yes (Hospitalization, Other)
  Sender: FDA-Public Use
  Company Number: JP-BOEHRINGER INGELHEIM PHARMACEUTICALS, INC.-2006-DE-02463GD

PATIENT
  Sex: Male

DRUGS (10)
  1. MEXILETINE HYDROCHLORIDE [Suspect]
     Indication: VENTRICULAR EXTRASYSTOLES
  2. ISOPRENALINE HCL [Suspect]
     Indication: TORSADE DE POINTES
     Dosage: CONTINUOUS INFUSION (0.02 MCG/KG PER MIN)
  3. ISOPRENALINE HCL [Suspect]
     Indication: DISEASE RECURRENCE
  4. LIDOCAINE [Suspect]
     Indication: TORSADE DE POINTES
     Dosage: BOLUS INJECTION (1 MG/KG) AND CONTINUOUS INFUSION (2 MG/KG PER H)
  5. LIDOCAINE [Suspect]
     Indication: DISEASE RECURRENCE
  6. BETA-BLOCKER [Suspect]
     Indication: LONG QT SYNDROME CONGENITAL
     Route: 048
  7. PHENYTOIN [Suspect]
     Indication: TORSADE DE POINTES
  8. PHENYTOIN [Suspect]
     Indication: DISEASE RECURRENCE
  9. ATROPINE SULFATE [Suspect]
     Indication: TORSADE DE POINTES
  10. ATROPINE SULFATE [Suspect]
     Indication: DISEASE RECURRENCE

REACTIONS (4)
  - BLOOD MAGNESIUM DECREASED [None]
  - DISEASE RECURRENCE [None]
  - DRUG INEFFECTIVE [None]
  - SYNCOPE [None]
